FAERS Safety Report 12504483 (Version 3)
Quarter: 2016Q3

REPORT INFORMATION
  Report Type: Spontaneous
  Country: EG (occurrence: EG)
  Receive Date: 20160628
  Receipt Date: 20160801
  Transmission Date: 20161109
  Serious: Yes (Other)
  Sender: FDA-Public Use
  Company Number: PHHY2016EG087090

PATIENT
  Age: 11 Year
  Sex: Male

DRUGS (1)
  1. TRILEPTAL [Suspect]
     Active Substance: OXCARBAZEPINE
     Indication: EPILEPSY
     Dosage: 300 MG, BID
     Route: 065
     Dates: start: 20160205

REACTIONS (7)
  - Abnormal behaviour [Recovered/Resolved]
  - Nystagmus [Recovered/Resolved]
  - Abdominal discomfort [Recovered/Resolved]
  - Blood sodium decreased [Recovered/Resolved]
  - Suicidal ideation [Recovered/Resolved]
  - Partial seizures [Recovered/Resolved]
  - Nervousness [Recovered/Resolved]

NARRATIVE: CASE EVENT DATE: 20160413
